FAERS Safety Report 16303414 (Version 1)
Quarter: 2019Q2

REPORT INFORMATION
  Report Type: Spontaneous
  Country: AT (occurrence: AT)
  Receive Date: 20190513
  Receipt Date: 20190513
  Transmission Date: 20190711
  Serious: Yes (Other)
  Sender: FDA-Public Use
  Company Number: AT-ACCORD-126999

PATIENT
  Age: 47 Year
  Sex: Female

DRUGS (10)
  1. ARIPIPRAZOLE. [Suspect]
     Active Substance: ARIPIPRAZOLE
     Indication: PRODUCT USED FOR UNKNOWN INDICATION
     Dosage: 15 MG, QD
     Dates: start: 2017
  2. RISPERIDONE. [Suspect]
     Active Substance: RISPERIDONE
     Indication: DEPRESSION
     Dosage: ALSO RECEIVED 3 MG FROM 26-SEP-2018 TO 01-OCT-2018 FOR EMOTIONALLY UNSTABLE PERSONALITY DISORDER
     Dates: start: 20180830, end: 20180925
  3. NOZINAN [Suspect]
     Active Substance: LEVOMEPROMAZINE
     Indication: PRODUCT USED FOR UNKNOWN INDICATION
     Dosage: 50 MG, DAILY
     Dates: start: 20170910
  4. TRESLEEN [Suspect]
     Active Substance: SERTRALINE HYDROCHLORIDE
     Indication: PRODUCT USED FOR UNKNOWN INDICATION
     Dosage: 100 MG, QD
     Dates: start: 20180914
  5. TEMESTA [Concomitant]
     Dosage: ALSO RECEIVED 5 MG FROM 28-SEP-2018.
     Dates: start: 20180924, end: 20180927
  6. TOPIRAMATE. [Concomitant]
     Active Substance: TOPIRAMATE
     Dosage: 50 MG, 1X/DAY
     Dates: start: 20170908
  7. ZELDOX [Concomitant]
     Active Substance: ZIPRASIDONE
     Dosage: ALSO RECEIVED FROM 09-SEP-2018.
     Dates: start: 20181009
  8. CYMBALTA [Suspect]
     Active Substance: DULOXETINE HYDROCHLORIDE
     Indication: PRODUCT USED FOR UNKNOWN INDICATION
     Dosage: ALSO RECEIVED FROM AUG-2018 TO 10-SEP-2018, 120 MG FROM 11-SEP-2018 TO 03-DEC-2018.
     Dates: start: 20181204
  9. SEROQUEL [Concomitant]
     Active Substance: QUETIAPINE FUMARATE
     Indication: PRODUCT USED FOR UNKNOWN INDICATION
     Dosage: 50 MG, 1X/DAY
     Route: 065
     Dates: start: 20181116
  10. TRITTICO [Suspect]
     Active Substance: TRAZODONE HYDROCHLORIDE
     Indication: PRODUCT USED FOR UNKNOWN INDICATION
     Dosage: 300 MG, DAILY
     Dates: start: 20170910

REACTIONS (3)
  - Urinary retention [Recovering/Resolving]
  - Galactorrhoea [Recovered/Resolved]
  - Blood prolactin increased [Unknown]

NARRATIVE: CASE EVENT DATE: 2018
